FAERS Safety Report 5141936-6 (Version None)
Quarter: 2006Q4

REPORT INFORMATION
  Report Type: 
  Country: None (occurrence: None)
  Receive Date: 20061102
  Receipt Date: 20060707
  Transmission Date: 20070319
  Serious: Yes (Death, Other)
  Sender: FDA-Public Use
  Company Number: PHHO2006US11025

PATIENT
  Age: 59 Year
  Sex: Male
  Weight: 78.049 kg

DRUGS (18)
  1. GLEEVEC [Suspect]
     Indication: NON-SMALL CELL LUNG CANCER
     Dosage: 600 MG, QD
     Route: 048
     Dates: start: 20060615
  2. LASIX [Concomitant]
  3. ACETYLCYSTEINE [Concomitant]
  4. TAXOTERE [Suspect]
     Indication: NON-SMALL CELL LUNG CANCER
     Dosage: 30MG/M2 WKLY FOR 3 WKS
     Route: 042
     Dates: start: 20060615, end: 20060615
  5. ALBUTEROL [Concomitant]
  6. CITALOPRAM HYDROCHLORIDE [Concomitant]
  7. DEXAMETHASONE [Concomitant]
  8. ACETAMINOPHEN AND CODEINE PHOSPHATE [Concomitant]
  9. DOCETAXEL [Concomitant]
  10. FINASTERIDE [Concomitant]
  11. FLUNISOLIDE [Concomitant]
  12. FUROSEMIDE [Concomitant]
  13. METOPROLOL TARTRATE [Concomitant]
  14. NITROGLYCERIN [Concomitant]
  15. ONDANSETRON HCL [Concomitant]
  16. RANITIDINE [Concomitant]
  17. SIMVASTATIN [Concomitant]
  18. TERAZOSIN HYDROCHLORIDE [Concomitant]

REACTIONS (9)
  - BLOOD BILIRUBIN INCREASED [None]
  - BLOOD CREATININE INCREASED [None]
  - DEATH [None]
  - DYSPNOEA [None]
  - HYPONATRAEMIA [None]
  - INFLUENZA LIKE ILLNESS [None]
  - OEDEMA PERIPHERAL [None]
  - SENSATION OF HEAVINESS [None]
  - WEIGHT INCREASED [None]
